FAERS Safety Report 11091186 (Version 2)
Quarter: 2015Q3

REPORT INFORMATION
  Report Type: Spontaneous
  Country: US (occurrence: US)
  Receive Date: 20150505
  Receipt Date: 20150811
  Transmission Date: 20151125
  Serious: Yes (Other)
  Sender: FDA-Public Use
  Company Number: US-PFIZER INC-2015151094

PATIENT
  Age: 44 Year
  Sex: Female

DRUGS (9)
  1. VITAMIN B-6 [Concomitant]
     Active Substance: PYRIDOXINE
  2. COLACE [Concomitant]
     Active Substance: DOCUSATE SODIUM
  3. ZYRTEC-D [Concomitant]
     Active Substance: CETIRIZINE HYDROCHLORIDE\PSEUDOEPHEDRINE HYDROCHLORIDE
  4. VITAMIN B12 [Concomitant]
     Active Substance: CYANOCOBALAMIN
  5. GABAPENTIN. [Concomitant]
     Active Substance: GABAPENTIN
     Dosage: UNK
  6. VITAMIN D3 [Concomitant]
     Active Substance: CHOLECALCIFEROL
  7. LAXATIVE [Concomitant]
     Active Substance: UNSPECIFIED INGREDIENT
  8. NASOCORT [Concomitant]
     Active Substance: BUDESONIDE
  9. XELJANZ [Suspect]
     Active Substance: TOFACITINIB CITRATE
     Indication: RHEUMATOID ARTHRITIS
     Dosage: 10 MG, 2X/DAY
     Route: 048
     Dates: start: 20150423, end: 20150429

REACTIONS (5)
  - Pollakiuria [Not Recovered/Not Resolved]
  - Urticaria [Recovered/Resolved]
  - Tongue ulceration [Unknown]
  - Rheumatoid arthritis [Not Recovered/Not Resolved]
  - Condition aggravated [Not Recovered/Not Resolved]

NARRATIVE: CASE EVENT DATE: 20150429
